FAERS Safety Report 10412279 (Version 1)
Quarter: 2014Q2

REPORT INFORMATION
  Report Type: Spontaneous
  Country: US (occurrence: None)
  Receive Date: 20140604
  Receipt Date: 20140604
  Transmission Date: 20141212
  Serious: Yes (Hospitalization)
  Sender: FDA-Public Use
  Company Number: 20100416CINRY1454

PATIENT
  Age: 18 Year
  Sex: Female

DRUGS (4)
  1. CINRYZE [Suspect]
     Indication: HEREDITARY ANGIOEDEMA
     Dosage: 1000 UNIT, 1 IN 1 WK,
     Route: 042
     Dates: start: 200006, end: 200910
  2. CINRYZE [Suspect]
     Indication: PROPHYLAXIS
     Dosage: 1000 UNIT, 1 IN 1 WK,
     Route: 042
     Dates: start: 200006, end: 200910
  3. PRENATAL VITAMINS(PRENATAL VITAMINS /01549301/) [Concomitant]
  4. LORTAB(VICODIN) [Concomitant]

REACTIONS (4)
  - Hereditary angioedema [None]
  - Pregnancy [None]
  - Inappropriate schedule of drug administration [None]
  - Angioedema [None]
